FAERS Safety Report 7157477-0 (Version None)
Quarter: 2010Q4

REPORT INFORMATION
  Report Type: 
  Country: None (occurrence: None)
  Receive Date: 20101130
  Receipt Date: 20101104
  Transmission Date: 20110411
  Serious: Yes (Hospitalization)
  Sender: FDA-Public Use
  Company Number: ES-021391

PATIENT
  Age: 80 Year
  Sex: Male

DRUGS (1)
  1. (CHLORAMBUCIL) [Suspect]
     Indication: CHRONIC LYMPHOCYTIC LEUKAEMIA
     Dosage: TABLET 2 MG QD
     Dates: start: 20091201, end: 20100203

REACTIONS (3)
  - ANAEMIA [None]
  - NEUTROPENIA [None]
  - RESPIRATORY TRACT INFECTION [None]
